FAERS Safety Report 8200368-4 (Version None)
Quarter: 2012Q1

REPORT INFORMATION
  Report Type: 
  Country: None (occurrence: None)
  Receive Date: 20120312
  Receipt Date: 20120130
  Transmission Date: 20120608
  Serious: Yes (Other)
  Sender: FDA-Public Use
  Company Number: IT-ELI_LILLY_AND_COMPANY-IT201202000414

PATIENT

DRUGS (4)
  1. DOCETAXEL [Concomitant]
     Indication: NON-SMALL CELL LUNG CANCER
     Dosage: 75 MG/M2, D1 Q21 DAYS OR 25 MG/M2, D1, 8 + 15 Q28 DAYS
  2. CORTICOSTEROIDS [Concomitant]
     Indication: PREMEDICATION
     Route: 048
  3. CISPLATIN [Concomitant]
     Indication: NON-SMALL CELL LUNG CANCER
     Dosage: 75 MG/M2, D1 Q21 DAYS OR 25 MG/M2, D1, 8 + 15 Q28 DAYS
  4. GEMCITABINE HYDROCHLORIDE [Suspect]
     Indication: NON-SMALL CELL LUNG CANCER
     Dosage: 1200 MG/M2, ON DAY 1 AND DAY 8 OF EACH 21 DAY CYCLE

REACTIONS (2)
  - GENERAL PHYSICAL HEALTH DETERIORATION [None]
  - ABDOMINAL PAIN UPPER [None]
